FAERS Safety Report 8281314-4 (Version None)
Quarter: 2012Q2

REPORT INFORMATION
  Report Type: 
  Country: None (occurrence: None)
  Receive Date: 20120413
  Receipt Date: 20120410
  Transmission Date: 20120825
  Serious: No
  Sender: FDA-Public Use
  Company Number: US-PFIZER INC-2012042507

PATIENT
  Sex: Female
  Weight: 78.9 kg

DRUGS (4)
  1. PREMARIN [Suspect]
     Indication: HORMONE LEVEL ABNORMAL
     Dosage: 0.625 MG, 1X/DAY
     Route: 048
     Dates: start: 20081201
  2. PREMARIN [Suspect]
     Dosage: 0.45 MG, ALTERNATE DAY
     Route: 048
     Dates: start: 20081201
  3. CALCIUM [Concomitant]
     Dosage: UNK
  4. MULTI-VITAMINS [Concomitant]
     Dosage: UNK

REACTIONS (3)
  - BREAST CALCIFICATIONS [None]
  - INSOMNIA [None]
  - HEADACHE [None]
